FAERS Safety Report 9148977 (Version 1)
Quarter: 2013Q1

REPORT INFORMATION
  Report Type: Report from Study
  Country: JP (occurrence: JP)
  Receive Date: 20130308
  Receipt Date: 20130308
  Transmission Date: 20140127
  Serious: Yes (Hospitalization)
  Sender: FDA-Public Use
  Company Number: JP-SANOFI-AVENTIS-2013SA020981

PATIENT
  Age: 72 Year
  Sex: Male
  Weight: 66.7 kg

DRUGS (9)
  1. PLAVIX [Suspect]
     Indication: ANGINA PECTORIS
     Route: 065
     Dates: start: 20111213, end: 20111213
  2. PLAVIX [Suspect]
     Indication: ANGINA PECTORIS
     Route: 065
     Dates: start: 20111214, end: 20120821
  3. BAYASPIRIN [Concomitant]
     Dosage: BEING USED FROM BEFORE THE DAY PRECEDING STUDY TREATMENT
  4. GLIMICRON [Concomitant]
     Dosage: BEING USED FROM BEFORE THE DAY PRECEDING STUDY TREATMENT
  5. CARVEDILOL [Concomitant]
     Dosage: BEING USED FROM BEFORE THE DAY PRECEDING STUDY TREATMENT
     Dates: end: 20111226
  6. IMIDAPRIL HYDROCHLORIDE [Concomitant]
     Dosage: BEING USED FROM BEFORE THE DAY PRECEDING STUDY TREATMENT
     Dates: end: 20111226
  7. MEXITIL [Concomitant]
     Dosage: BEING USED FROM BEFORE THE DAY PRECEDING STUDY TREATMENT
     Dates: end: 20120505
  8. ARTIST [Concomitant]
     Dates: start: 20111227
  9. IMIDAPRIL HYDROCHLORIDE [Concomitant]
     Dates: start: 20111227

REACTIONS (2)
  - Ventricular tachycardia [Recovering/Resolving]
  - Epistaxis [Recovered/Resolved]
